FAERS Safety Report 4607579-5 (Version None)
Quarter: 2005Q1

REPORT INFORMATION
  Report Type: 
  Country: None (occurrence: None)
  Receive Date: 20050310
  Receipt Date: 20050223
  Transmission Date: 20050727
  Serious: Yes (Other)
  Sender: FDA-Public Use
  Company Number: S05-GER-00905-01

PATIENT
  Age: 38 Year
  Sex: Male

DRUGS (3)
  1. CIPRALEX (ESCITALOPRAM [Suspect]
     Dosage: 10 MG QD PO
     Route: 048
     Dates: start: 20041001, end: 20050201
  2. CIPRALEX (ESCITALOPRAM) [Suspect]
     Dosage: 10 MG QD PO
     Route: 048
     Dates: start: 20050201
  3. HEPARIN [Concomitant]

REACTIONS (2)
  - POST PROCEDURAL HAEMATOMA [None]
  - POSTOPERATIVE WOUND COMPLICATION [None]
